FAERS Safety Report 5888078-X (Version None)
Quarter: 2008Q3

REPORT INFORMATION
  Report Type: 
  Country: None (occurrence: None)
  Receive Date: 20080917
  Receipt Date: 20080917
  Transmission Date: 20090109
  Serious: Yes (Hospitalization)
  Sender: FDA-Public Use
  Company Number: None

PATIENT
  Sex: Male
  Weight: 83.9 kg

DRUGS (2)
  1. CARBOPLATIN [Suspect]
     Dosage: 1174.8 MG
  2. TAXOL [Suspect]
     Dosage: 537.5 MG

REACTIONS (4)
  - ARTHRALGIA [None]
  - ERYTHEMA [None]
  - JOINT SWELLING [None]
  - STAPHYLOCOCCAL INFECTION [None]
